FAERS Safety Report 25946818 (Version 1)
Quarter: 2025Q4

REPORT INFORMATION
  Report Type: Spontaneous
  Country: US (occurrence: US)
  Receive Date: 20251022
  Receipt Date: 20251022
  Transmission Date: 20260117
  Serious: No
  Sender: GLAXOSMITHKLINE
  Company Number: US-GSK-US2025124830

PATIENT
  Sex: Male

DRUGS (1)
  1. VENTOLIN HFA [Suspect]
     Active Substance: ALBUTEROL SULFATE
     Indication: Asthma
     Dosage: 1 OR 2 PUFFS ORAL INHALATION BID; HAS INCREASED TO 2 PUFFS, AND MORE FREQUENTLY THAN BID.

REACTIONS (5)
  - Asthma [Unknown]
  - Dyspnoea [Not Recovered/Not Resolved]
  - Intentional overdose [Unknown]
  - Wrong technique in product usage process [Unknown]
  - Drug ineffective [Not Recovered/Not Resolved]

NARRATIVE: CASE EVENT DATE: 20250101
